FAERS Safety Report 14848238 (Version 1)
Quarter: 2018Q2

REPORT INFORMATION
  Report Type: Spontaneous
  Country: US (occurrence: US)
  Receive Date: 20180504
  Receipt Date: 20180504
  Transmission Date: 20180711
  Serious: Yes (Hospitalization, Other)
  Sender: FDA-Public Use
  Company Number: US-JAZZ-2018-US-006857

PATIENT
  Age: 24 Year
  Sex: Male

DRUGS (1)
  1. CLOZAPINE. [Suspect]
     Active Substance: CLOZAPINE
     Indication: SCHIZOAFFECTIVE DISORDER
     Dosage: UNK MG, QD
     Route: 048

REACTIONS (12)
  - Pericarditis [Unknown]
  - Dehydration [Unknown]
  - Acute kidney injury [Unknown]
  - Diarrhoea [Recovered/Resolved]
  - Chills [Unknown]
  - Vomiting [Unknown]
  - Nausea [Unknown]
  - Eosinophil count increased [Recovered/Resolved]
  - Pleural effusion [Unknown]
  - Cough [Unknown]
  - Myocarditis [Unknown]
  - Eosinophilia [Recovering/Resolving]
